FAERS Safety Report 20175564 (Version 1)
Quarter: 2021Q4

REPORT INFORMATION
  Report Type: Spontaneous
  Country: HN (occurrence: HN)
  Receive Date: 20211213
  Receipt Date: 20211213
  Transmission Date: 20220303
  Serious: Yes (Hospitalization, Other)
  Sender: FDA-Public Use
  Company Number: HN-NOVARTISPH-NVSC2021HN270366

PATIENT
  Sex: Female

DRUGS (1)
  1. GLIVEC [Suspect]
     Active Substance: IMATINIB MESYLATE
     Indication: Chronic myeloid leukaemia
     Dosage: 400 MG, BID (1X 400 MG)
     Route: 048

REACTIONS (6)
  - Haemoglobin decreased [Unknown]
  - Blood glucose decreased [Unknown]
  - Chronic myeloid leukaemia recurrent [Unknown]
  - Syncope [Unknown]
  - Diabetes mellitus [Unknown]
  - Therapy non-responder [Unknown]
